FAERS Safety Report 23569770 (Version 2)
Quarter: 2024Q1

REPORT INFORMATION
  Report Type: Report from Study
  Country: US (occurrence: US)
  Receive Date: 20240227
  Receipt Date: 20240228
  Transmission Date: 20240409
  Serious: Yes (Death)
  Sender: FDA-Public Use
  Company Number: US-ABBVIE-5655329

PATIENT
  Age: 90 Year
  Sex: Female

DRUGS (1)
  1. HUMIRA [Suspect]
     Active Substance: ADALIMUMAB
     Indication: Psoriasis
     Dosage: FORM STRENGTH: 40 MG, CITRATE FREE
     Route: 058
     Dates: start: 20231030, end: 20240219

REACTIONS (1)
  - Death [Fatal]

NARRATIVE: CASE EVENT DATE: 20240219
